FAERS Safety Report 19459009 (Version 1)
Quarter: 2021Q2

REPORT INFORMATION
  Report Type: Spontaneous
  Country: US (occurrence: US)
  Receive Date: 20210623
  Receipt Date: 20210623
  Transmission Date: 20210717
  Serious: Yes (Other)
  Sender: FDA-Public Use
  Company Number: None

PATIENT
  Age: 29 Year
  Sex: Male
  Weight: 73.48 kg

DRUGS (2)
  1. BENZEDREX [Suspect]
     Active Substance: PROPYLHEXEDRINE
  2. BENEDREX [Concomitant]

REACTIONS (1)
  - Substance abuser [None]

NARRATIVE: CASE EVENT DATE: 20210618
